FAERS Safety Report 24690059 (Version 3)
Quarter: 2025Q1

REPORT INFORMATION
  Report Type: Report from Study
  Country: US (occurrence: US)
  Receive Date: 20241203
  Receipt Date: 20250101
  Transmission Date: 20250409
  Serious: Yes (Death, Hospitalization)
  Sender: EXELIXIS
  Company Number: US-EXELIXIS-EXL-2024-001472

PATIENT
  Age: 57 Year
  Sex: Male

DRUGS (13)
  1. CABOMETYX [Suspect]
     Active Substance: CABOZANTINIB S-MALATE
     Indication: Renal cancer
     Dosage: 40 MG, QD
     Route: 048
     Dates: start: 20241008
  2. CABOMETYX [Suspect]
     Active Substance: CABOZANTINIB S-MALATE
     Dosage: 40 MG, QD
     Route: 048
  3. CABOMETYX [Suspect]
     Active Substance: CABOZANTINIB S-MALATE
     Dosage: 40 MG, QD
     Route: 048
  4. ALLOPURINOL [Concomitant]
     Active Substance: ALLOPURINOL
  5. CYANOCOBALAMIN [Concomitant]
     Active Substance: CYANOCOBALAMIN
  6. DEXAMETHASONE [Concomitant]
     Active Substance: DEXAMETHASONE
  7. DRONABINOL [Concomitant]
     Active Substance: DRONABINOL
  8. FOLIC ACID [Concomitant]
     Active Substance: FOLIC ACID
  9. FUROSEMIDE [Concomitant]
     Active Substance: FUROSEMIDE
  10. IRON [Concomitant]
     Active Substance: IRON
  11. LANTUS SOLOSTAR [Concomitant]
     Active Substance: INSULIN GLARGINE
  12. LIDOCAINE [Concomitant]
     Active Substance: LIDOCAINE
  13. ICY HOT [Concomitant]
     Active Substance: MENTHOL\METHYL SALICYLATE

REACTIONS (10)
  - Pericardial effusion [Unknown]
  - Fatigue [Unknown]
  - Death [Fatal]
  - Depression [Unknown]
  - Nausea [Not Recovered/Not Resolved]
  - Diarrhoea [Unknown]
  - Abdominal pain upper [Unknown]
  - Constipation [Unknown]
  - Candida infection [Unknown]
  - Loss of personal independence in daily activities [Unknown]

NARRATIVE: CASE EVENT DATE: 20240801
